FAERS Safety Report 20134201 (Version 1)
Quarter: 2021Q4

REPORT INFORMATION
  Report Type: Spontaneous
  Country: HU (occurrence: HU)
  Receive Date: 20211201
  Receipt Date: 20211201
  Transmission Date: 20220303
  Serious: Yes (Disabling, Other)
  Sender: FDA-Public Use
  Company Number: HU-NOVARTISPH-NVSC2021HU268290

PATIENT
  Age: 42 Year
  Sex: Female

DRUGS (6)
  1. CATAFLAM [Suspect]
     Active Substance: DICLOFENAC POTASSIUM
     Indication: Product used for unknown indication
     Dosage: 50 MG IN THE MORNING AND EVENING
     Route: 065
  2. LEVOFLOXACIN HEMIHYDRATE [Suspect]
     Active Substance: LEVOFLOXACIN
     Indication: Nasopharyngitis
     Dosage: 500 MG, QD(ONCE IN THE EVENING)
     Route: 065
     Dates: start: 20201220, end: 20201222
  3. LEVOFLOXACIN HEMIHYDRATE [Suspect]
     Active Substance: LEVOFLOXACIN
     Indication: Cough
  4. LEVOFLOXACIN HEMIHYDRATE [Suspect]
     Active Substance: LEVOFLOXACIN
     Indication: Choking sensation
  5. CLARITHROMYCIN [Concomitant]
     Active Substance: CLARITHROMYCIN
     Indication: Product used for unknown indication
     Dosage: 500 MG, QD (IN THE MORNING)
     Route: 065
  6. BENFOTIAMINE\CYANOCOBALAMIN\PYRIDOXINE HYDROCHLORIDE [Concomitant]
     Active Substance: BENFOTIAMINE\CYANOCOBALAMIN\PYRIDOXINE HYDROCHLORIDE
     Indication: Product used for unknown indication
     Dosage: UNK
     Route: 065
     Dates: start: 202102

REACTIONS (48)
  - Muscle atrophy [Unknown]
  - Polyneuropathy [Unknown]
  - Arrhythmia [Unknown]
  - Angina pectoris [Not Recovered/Not Resolved]
  - Eye pain [Unknown]
  - Myalgia [Unknown]
  - Weight decreased [Recovering/Resolving]
  - Pain in extremity [Not Recovered/Not Resolved]
  - Abdominal distension [Unknown]
  - Cerebral disorder [Not Recovered/Not Resolved]
  - Cardiac disorder [Unknown]
  - Skin burning sensation [Not Recovered/Not Resolved]
  - Eye pruritus [Unknown]
  - Gastrointestinal disorder [Unknown]
  - Burning sensation [Recovering/Resolving]
  - Musculoskeletal stiffness [Not Recovered/Not Resolved]
  - Genital burning sensation [Not Recovered/Not Resolved]
  - Photosensitivity reaction [Recovering/Resolving]
  - Axillary pain [Not Recovered/Not Resolved]
  - Tendon disorder [Unknown]
  - Platelet count increased [Unknown]
  - Nasal pruritus [Recovered/Resolved]
  - Tenderness [Not Recovered/Not Resolved]
  - Hypophagia [Unknown]
  - Muscular weakness [Unknown]
  - Ocular discomfort [Unknown]
  - Hypoaesthesia [Not Recovered/Not Resolved]
  - Dyspepsia [Not Recovered/Not Resolved]
  - Headache [Not Recovered/Not Resolved]
  - Pain [Unknown]
  - Chest pain [Not Recovered/Not Resolved]
  - Tinnitus [Unknown]
  - Pruritus [Recovered/Resolved]
  - Fatigue [Not Recovered/Not Resolved]
  - Malaise [Not Recovered/Not Resolved]
  - Palpitations [Not Recovered/Not Resolved]
  - Arthralgia [Unknown]
  - Faeces discoloured [Unknown]
  - Muscle twitching [Not Recovered/Not Resolved]
  - Sleep disorder [Not Recovered/Not Resolved]
  - Feeling abnormal [Unknown]
  - Skin exfoliation [Recovered/Resolved]
  - Dysstasia [Unknown]
  - Hyperacusis [Unknown]
  - Spinal pain [Unknown]
  - Bone pain [Unknown]
  - Paraesthesia [Unknown]
  - Tremor [Unknown]

NARRATIVE: CASE EVENT DATE: 20201201
